FAERS Safety Report 17939763 (Version 1)
Quarter: 2020Q2

REPORT INFORMATION
  Report Type: Spontaneous
  Country: GB (occurrence: GB)
  Receive Date: 20200624
  Receipt Date: 20200624
  Transmission Date: 20200714
  Serious: Yes (Hospitalization)
  Sender: FDA-Public Use
  Company Number: GB-MYLANLABS-2020M1057715

PATIENT
  Age: 25 Year
  Sex: Female
  Weight: 90.5 kg

DRUGS (2)
  1. ACETYLSALICYLIC ACID [Concomitant]
     Active Substance: ASPIRIN
     Dosage: UNK
  2. ENALAPRIL [Suspect]
     Active Substance: ENALAPRIL
     Indication: ESSENTIAL HYPERTENSION
     Dosage: 5 MILLIGRAM
     Route: 048

REACTIONS (4)
  - Preterm premature rupture of membranes [Recovered/Resolved]
  - Abortion spontaneous [Recovered/Resolved]
  - Maternal exposure during pregnancy [Recovered/Resolved]
  - Amniotic cavity infection [Unknown]

NARRATIVE: CASE EVENT DATE: 20191029
